FAERS Safety Report 15049103 (Version 1)
Quarter: 2018Q2

REPORT INFORMATION
  Report Type: Spontaneous
  Country: IT (occurrence: IT)
  Receive Date: 20180622
  Receipt Date: 20180622
  Transmission Date: 20180711
  Serious: Yes (Other)
  Sender: FDA-Public Use
  Company Number: PHHY2018IT022501

PATIENT
  Age: 38 Year
  Sex: Female

DRUGS (1)
  1. TRAMETINIB [Suspect]
     Active Substance: TRAMETINIB
     Indication: OVARIAN CANCER METASTATIC
     Dosage: 2 MG, QD
     Route: 065

REACTIONS (4)
  - Blindness [Recovered/Resolved]
  - Chorioretinopathy [Recovered/Resolved]
  - Metamorphopsia [Recovered/Resolved]
  - Product use in unapproved indication [Unknown]
